FAERS Safety Report 4498428-7 (Version None)
Quarter: 2004Q4

REPORT INFORMATION
  Report Type: 
  Country: None (occurrence: None)
  Receive Date: 20041105
  Receipt Date: 20041022
  Transmission Date: 20050328
  Serious: Yes (Hospitalization)
  Sender: FDA-Public Use
  Company Number: S04-GER-02708-01

PATIENT
  Age: 81 Year
  Sex: Female

DRUGS (4)
  1. CITALOPRAM HYDROBROMIDE [Suspect]
     Indication: DEPRESSION
     Dosage: 20 MG PO
     Route: 048
     Dates: start: 20030821, end: 20040514
  2. ARICEPT [Concomitant]
  3. ACETYLSALICYLIC ACID SRT [Concomitant]
  4. ZOP (ZOPICLONE) [Concomitant]

REACTIONS (5)
  - ACTIVATED PARTIAL THROMBOPLASTIN TIME PROLONGED [None]
  - COAGULATION FACTOR VIII LEVEL DECREASED [None]
  - FACTOR XIII DEFICIENCY [None]
  - HAEMATOMA [None]
  - HAEMORRHAGIC DIATHESIS [None]
